FAERS Safety Report 22253117 (Version 1)
Quarter: 2023Q2

REPORT INFORMATION
  Report Type: Spontaneous
  Country: CA (occurrence: None)
  Receive Date: 20230426
  Receipt Date: 20230426
  Transmission Date: 20230721
  Serious: Yes (Hospitalization)
  Sender: FDA-Public Use
  Company Number: CA-EMD Serono-9397259

PATIENT
  Sex: Female

DRUGS (3)
  1. MAVENCLAD [Suspect]
     Active Substance: CLADRIBINE
     Indication: Product used for unknown indication
  2. DALFAMPRIDINE [Suspect]
     Active Substance: DALFAMPRIDINE
     Indication: Multiple sclerosis
     Dosage: PROLONGED RELEASE TABLET.
  3. DALFAMPRIDINE [Suspect]
     Active Substance: DALFAMPRIDINE
     Dosage: EXTENDED RELEASE TABLET.

REACTIONS (1)
  - Multiple sclerosis [Unknown]
